FAERS Safety Report 16821789 (Version 1)
Quarter: 2019Q4

REPORT INFORMATION
  Report Type: Spontaneous
  Country: US (occurrence: US)
  Receive Date: 20190917
  Receipt Date: 20190917
  Transmission Date: 20200122
  Serious: No
  Sender: FDA-Public Use
  Company Number: None

PATIENT
  Age: 53 Year
  Sex: Female
  Weight: 50.85 kg

DRUGS (1)
  1. GABAPENTIN. [Suspect]
     Active Substance: GABAPENTIN
     Indication: NEUROPATHY PERIPHERAL
     Dosage: ?          QUANTITY:1 CAPSULE(S);?
     Route: 048
     Dates: start: 20190614, end: 20190730

REACTIONS (10)
  - Agitation [None]
  - Depression [None]
  - Suicidal ideation [None]
  - Vertigo [None]
  - Gait disturbance [None]
  - Cognitive disorder [None]
  - Panic attack [None]
  - Aphasia [None]
  - Fatigue [None]
  - Disturbance in attention [None]

NARRATIVE: CASE EVENT DATE: 20190626
